FAERS Safety Report 24565810 (Version 9)
Quarter: 2025Q1

REPORT INFORMATION
  Report Type: Spontaneous
  Country: US (occurrence: US)
  Receive Date: 20241030
  Receipt Date: 20250317
  Transmission Date: 20250409
  Serious: No
  Sender: PFIZER
  Company Number: US-PFIZER INC-PV202400139865

PATIENT
  Age: 61 Year
  Sex: Female

DRUGS (1)
  1. IBRANCE [Suspect]
     Active Substance: PALBOCICLIB

REACTIONS (13)
  - Dyspepsia [Recovered/Resolved]
  - Constipation [Recovering/Resolving]
  - Hot flush [Not Recovered/Not Resolved]
  - Erythema [Unknown]
  - Tumour marker increased [Unknown]
  - White blood cell count decreased [Unknown]
  - Pruritus [Unknown]
  - Erythema [Unknown]
  - Full blood count decreased [Not Recovered/Not Resolved]
  - Fatigue [Not Recovered/Not Resolved]
  - Product dose omission issue [Unknown]
  - Product dose omission in error [Unknown]
  - Off label use [Unknown]
